FAERS Safety Report 4455692-8 (Version None)
Quarter: 2004Q3

REPORT INFORMATION
  Report Type: 
  Country: None (occurrence: None)
  Receive Date: 20040920
  Receipt Date: 20040913
  Transmission Date: 20050211
  Serious: Yes (Death, Hospitalization, Other)
  Sender: FDA-Public Use
  Company Number: US-JNJFOC-20040903487

PATIENT
  Age: 37 Year
  Sex: Male

DRUGS (2)
  1. ACETAMINOPHEN [Suspect]
     Indication: FACIAL BONES FRACTURE
     Dosage: HIGH DOSES
  2. ETHANOL(ETHANOL) [Suspect]
     Indication: INTENTIONAL MISUSE
     Dosage: ORAL
     Route: 048

REACTIONS (20)
  - ADRENAL INSUFFICIENCY [None]
  - BRONCHOPNEUMONIA [None]
  - COAGULOPATHY [None]
  - FACIAL BONES FRACTURE [None]
  - FUNGAEMIA [None]
  - FUNGAL ABSCESS CENTRAL NERVOUS SYSTEM [None]
  - FUNGAL INFECTION [None]
  - GASTROINTESTINAL HAEMORRHAGE [None]
  - GENERALISED OEDEMA [None]
  - HEPATIC ENCEPHALOPATHY [None]
  - HEPATIC ENZYME INCREASED [None]
  - HEPATIC FAILURE [None]
  - HEPATIC NECROSIS [None]
  - HYPOCALCAEMIA [None]
  - NECROSIS [None]
  - PANCREATIC NECROSIS [None]
  - PANCREATITIS [None]
  - PLEURAL EFFUSION [None]
  - RENAL FAILURE [None]
  - RESPIRATORY FAILURE [None]
